FAERS Safety Report 24746110 (Version 2)
Quarter: 2024Q4

REPORT INFORMATION
  Report Type: Spontaneous
  Country: DE (occurrence: DE)
  Receive Date: 20241218
  Receipt Date: 20241230
  Transmission Date: 20250114
  Serious: Yes (Life-Threatening)
  Sender: SANDOZ
  Company Number: DE-BAYER-2024A174979

PATIENT
  Sex: Male

DRUGS (6)
  1. AFLIBERCEPT [Suspect]
     Active Substance: AFLIBERCEPT
     Indication: Product used for unknown indication
     Dosage: 70 ?L
     Route: 065
     Dates: start: 20240430
  2. AFLIBERCEPT [Suspect]
     Active Substance: AFLIBERCEPT
     Dosage: 70 ?L , LEFT EYE
     Route: 065
     Dates: start: 20240528
  3. AFLIBERCEPT [Suspect]
     Active Substance: AFLIBERCEPT
     Dosage: 70 ?L , LEFT EYE
     Route: 065
     Dates: start: 20240625
  4. AFLIBERCEPT [Suspect]
     Active Substance: AFLIBERCEPT
     Dosage: 70 ?L , LEFT EYE
     Route: 065
     Dates: start: 20240730
  5. AFLIBERCEPT [Suspect]
     Active Substance: AFLIBERCEPT
     Dosage: 70 ?L , LEFT EYE
     Route: 065
     Dates: start: 20240930
  6. AFLIBERCEPT [Suspect]
     Active Substance: AFLIBERCEPT
     Dosage: 70 ?L, LEFT EYE
     Route: 065
     Dates: start: 20241020

REACTIONS (1)
  - Rectal cancer [Not Recovered/Not Resolved]

NARRATIVE: CASE EVENT DATE: 20241122
